FAERS Safety Report 5722956-7 (Version None)
Quarter: 2008Q2

REPORT INFORMATION
  Report Type: 
  Country: None (occurrence: None)
  Receive Date: 20080428
  Receipt Date: 20080428
  Transmission Date: 20081010
  Serious: No
  Sender: FDA-Public Use
  Company Number: None

PATIENT
  Age: 35 Year
  Sex: Male
  Weight: 72.5755 kg

DRUGS (1)
  1. BUDEPRION 200MG TEVA [Suspect]
     Dosage: 200MG ONCE A DAY PO
     Route: 048

REACTIONS (4)
  - ABNORMAL SENSATION IN EYE [None]
  - EYE DISORDER [None]
  - FEELING JITTERY [None]
  - PHARMACEUTICAL PRODUCT COMPLAINT [None]
